FAERS Safety Report 8478795-X (Version None)
Quarter: 2012Q2

REPORT INFORMATION
  Report Type: 
  Country: None (occurrence: None)
  Receive Date: 20120629
  Receipt Date: 20120626
  Transmission Date: 20120825
  Serious: Yes (Disabling)
  Sender: FDA-Public Use
  Company Number: DK-ROCHE-1082157

PATIENT
  Sex: Male

DRUGS (3)
  1. MABTHERA [Suspect]
     Indication: RHEUMATOID ARTHRITIS
     Dosage: START DOSE: 1000 MG TWICE IN TWO WEEKS
     Dates: start: 20080904
  2. PREDNISOLONE [Concomitant]
     Indication: RHEUMATOID ARTHRITIS
     Dates: start: 20080606
  3. METHOTREXATE [Concomitant]
     Indication: RHEUMATOID ARTHRITIS
     Dosage: ORAL FROM 20-JAN-2005 UNTIL 12-OCT-2005.
     Route: 048
     Dates: start: 20050120

REACTIONS (1)
  - CEREBRAL HAEMORRHAGE [None]
